FAERS Safety Report 21468793 (Version 5)
Quarter: 2023Q1

REPORT INFORMATION
  Report Type: Report from Study
  Country: AU (occurrence: AU)
  Receive Date: 20221018
  Receipt Date: 20230131
  Transmission Date: 20230418
  Serious: Yes (Death, Hospitalization)
  Sender: FDA-Public Use
  Company Number: AU-SA-SAC20220920000991

PATIENT
  Age: 77 Year
  Sex: Male
  Weight: 78.4 kg

DRUGS (26)
  1. ISATUXIMAB [Suspect]
     Active Substance: ISATUXIMAB
     Indication: Primary amyloidosis
     Dosage: 786 MG, 1X
     Route: 042
     Dates: start: 20220908, end: 20220908
  2. ISATUXIMAB [Suspect]
     Active Substance: ISATUXIMAB
     Dosage: UNK
  3. ISATUXIMAB [Suspect]
     Active Substance: ISATUXIMAB
     Dosage: 786 MG, 1X
     Route: 042
     Dates: start: 20221110, end: 20221110
  4. POMALIDOMIDE [Suspect]
     Active Substance: POMALIDOMIDE
     Indication: Primary amyloidosis
     Dosage: 3 MG, QD
     Route: 048
     Dates: start: 20220825, end: 20220825
  5. POMALIDOMIDE [Suspect]
     Active Substance: POMALIDOMIDE
     Dosage: UNK
  6. POMALIDOMIDE [Suspect]
     Active Substance: POMALIDOMIDE
     Dosage: 3 MG, QD
     Route: 048
     Dates: start: 20220914, end: 20220914
  7. POMALIDOMIDE [Suspect]
     Active Substance: POMALIDOMIDE
     Dosage: 3 MG, QD
     Route: 048
     Dates: start: 20221027, end: 20221027
  8. DEXAMETHASONE [Suspect]
     Active Substance: DEXAMETHASONE
     Indication: Primary amyloidosis
     Dosage: 10 MG, QW
     Route: 048
     Dates: start: 20220825, end: 20220825
  9. DEXAMETHASONE [Suspect]
     Active Substance: DEXAMETHASONE
     Dosage: UNK
  10. DEXAMETHASONE [Suspect]
     Active Substance: DEXAMETHASONE
     Dosage: 10 MG, QW
     Route: 048
     Dates: start: 20220915, end: 20220915
  11. DEXAMETHASONE [Suspect]
     Active Substance: DEXAMETHASONE
     Dosage: 10 MG, QW
     Route: 048
     Dates: start: 20221027, end: 20221027
  12. NORSPAN [Concomitant]
     Active Substance: BUPRENORPHINE
     Indication: Pain
     Dosage: 1 PATCH WEEKLY
  13. DAPSONE [Concomitant]
     Active Substance: DAPSONE
     Indication: Prophylaxis
     Dosage: 1 DF, BIW
  14. DOCUSATE SODIUM\SENNOSIDES [Concomitant]
     Active Substance: DOCUSATE SODIUM\SENNOSIDES
     Indication: Constipation prophylaxis
     Dosage: 2 DF, BID
  15. EZETIMIBE [Concomitant]
     Active Substance: EZETIMIBE
     Indication: Blood cholesterol increased
     Dosage: 1 DF, QD
  16. LERCANIDIPINE [Concomitant]
     Active Substance: LERCANIDIPINE
     Indication: Blood cholesterol
     Dosage: 1 DF, QD
  17. METOCLOPRAMIDE [Concomitant]
     Active Substance: METOCLOPRAMIDE
     Indication: Nausea
     Dosage: 1-2 TABLET EVERY FOUR TO SIX HOUR
  18. METOPROLOL TARTRATE [Concomitant]
     Active Substance: METOPROLOL TARTRATE
     Indication: Angina pectoris
     Dosage: HALF TABLET
  19. PANADOL [Concomitant]
     Active Substance: ACETAMINOPHEN
     Indication: Pain
     Dosage: 2 DF, Q4D
  20. POMALYST [Concomitant]
     Active Substance: POMALIDOMIDE
     Indication: Amyloidosis
     Dosage: SWALLOW WHOLE 1 CAPSULE FOR FIRST 21 DAYS OF EACH CYCLE
  21. LYRICA [Concomitant]
     Active Substance: PREGABALIN
     Indication: Neuralgia
  22. CRESTOR [Concomitant]
     Active Substance: ROSUVASTATIN CALCIUM
     Indication: Myocardial infarction
     Dosage: 1 DF, ON ALERNATE DAY AT NIGHT
  23. CRESTOR [Concomitant]
     Active Substance: ROSUVASTATIN CALCIUM
     Indication: Blood cholesterol decreased
  24. BACTRIM DS [Concomitant]
     Active Substance: SULFAMETHOXAZOLE\TRIMETHOPRIM
     Indication: Rash
  25. APO VALACICLOVIR [Concomitant]
     Indication: Viral infection
     Dosage: 1 DF, MORNING
  26. ELIQUIS [Concomitant]
     Active Substance: APIXABAN
     Dosage: 1 DF, BID

REACTIONS (2)
  - Respiratory failure [Fatal]
  - Metapneumovirus infection [Recovered/Resolved]

NARRATIVE: CASE EVENT DATE: 20220916
